FAERS Safety Report 25630207 (Version 1)
Quarter: 2025Q3

REPORT INFORMATION
  Report Type: Report from Study
  Country: US (occurrence: US)
  Receive Date: 20250801
  Receipt Date: 20250801
  Transmission Date: 20251021
  Serious: Yes (Death, Hospitalization, Other)
  Sender: ALEXION PHARMACEUTICALS
  Company Number: US-AstraZeneca-CH-00889838A

PATIENT
  Sex: Male
  Weight: 76.644 kg

DRUGS (4)
  1. OLAPARIB [Suspect]
     Active Substance: OLAPARIB
     Indication: Brain neoplasm malignant
     Dosage: 300 MILLIGRAM, BID
     Dates: end: 20250526
  2. ALENDRONATE [Concomitant]
     Active Substance: ALENDRONATE SODIUM
     Route: 065
  3. BACTRIM [Concomitant]
     Active Substance: SULFAMETHOXAZOLE\TRIMETHOPRIM
     Route: 065
  4. PREDNISONE [Concomitant]
     Active Substance: PREDNISONE
     Route: 065

REACTIONS (5)
  - Infusion related reaction [Fatal]
  - Cortisol decreased [Unknown]
  - Adrenocortical insufficiency acute [Unknown]
  - Hypothyroidism [Unknown]
  - Fatigue [Unknown]
